FAERS Safety Report 8314028-2 (Version None)
Quarter: 2012Q2

REPORT INFORMATION
  Report Type: 
  Country: None (occurrence: None)
  Receive Date: 20120426
  Receipt Date: 20120420
  Transmission Date: 20120825
  Serious: No
  Sender: FDA-Public Use
  Company Number: US-PFIZER INC-2012098989

PATIENT
  Sex: Female

DRUGS (8)
  1. LIPITOR [Suspect]
     Dosage: 40 MG, DAILY
     Route: 048
     Dates: start: 20110506
  2. THERAPEUTIC-M [Suspect]
     Dosage: 1 UNIT DOSE TABLET, DAILY
     Route: 048
     Dates: start: 20110927
  3. GLUCOPHAGE [Suspect]
     Dosage: 1000 MG, 2X/DAY
     Route: 048
     Dates: start: 20110927
  4. FOSAMAX [Suspect]
     Dosage: 70 MG, EVERY WEEK
     Route: 048
     Dates: start: 20110927
  5. SYNTHROID [Suspect]
     Dosage: 50 UG, DAILY
     Route: 048
     Dates: start: 20110927
  6. FISH OIL [Suspect]
     Dosage: 1000 MG, 2X/DAY
     Route: 048
     Dates: start: 20110927
  7. CALCIUM CARBONATE [Suspect]
     Dosage: 600 MG, 2X/DAY
     Route: 048
  8. ASPIRIN [Suspect]
     Dosage: 81 MG, DAILY
     Route: 048
     Dates: start: 20110927

REACTIONS (2)
  - TONSILLITIS [None]
  - PHARYNGITIS [None]
